FAERS Safety Report 10334035 (Version 2)
Quarter: 2014Q4

REPORT INFORMATION
  Report Type: Spontaneous
  Country: US (occurrence: US)
  Receive Date: 20140723
  Receipt Date: 20141030
  Transmission Date: 20150528
  Serious: Yes (Hospitalization)
  Sender: FDA-Public Use
  Company Number: US-BRISTOL-MYERS SQUIBB COMPANY-21222815

PATIENT
  Age: 81 Year
  Sex: Female
  Weight: 77.1 kg

DRUGS (17)
  1. PANTOPRAZOLE [Concomitant]
     Active Substance: PANTOPRAZOLE SODIUM
  2. BENZONATATE. [Concomitant]
     Active Substance: BENZONATATE
  3. FERROUS SULFATE [Concomitant]
     Active Substance: FERROUS SULFATE\FERROUS SULFATE, DRIED
  4. GLUCOSE [Concomitant]
     Active Substance: DEXTROSE
  5. HYDROXYCHLOROQUINE [Concomitant]
     Active Substance: HYDROXYCHLOROQUINE
  6. FUROSEMIDE. [Concomitant]
     Active Substance: FUROSEMIDE
  7. FOLIC ACID. [Concomitant]
     Active Substance: FOLIC ACID
  8. HUMALOG [Concomitant]
     Active Substance: INSULIN LISPRO
  9. ELIQUIS [Suspect]
     Active Substance: APIXABAN
     Indication: CEREBROVASCULAR ACCIDENT PROPHYLAXIS
     Route: 048
     Dates: start: 20140706, end: 20140713
  10. METHOTREXATE [Concomitant]
     Active Substance: METHOTREXATE
  11. LORTAB [Concomitant]
     Active Substance: ACETAMINOPHEN\HYDROCODONE BITARTRATE
  12. SYNTHROID [Concomitant]
     Active Substance: LEVOTHYROXINE SODIUM
  13. LOSARTAN [Suspect]
     Active Substance: LOSARTAN
     Route: 048
  14. ALLOPURINOL. [Concomitant]
     Active Substance: ALLOPURINOL
  15. LORATADINE. [Concomitant]
     Active Substance: LORATADINE
  16. FLECAINIDE [Concomitant]
     Active Substance: FLECAINIDE
  17. LEVOFLOXACIN. [Concomitant]
     Active Substance: LEVOFLOXACIN

REACTIONS (6)
  - Gastrointestinal haemorrhage [Unknown]
  - Pericardial haemorrhage [Unknown]
  - Mental status changes [Unknown]
  - Renal failure [Unknown]
  - Cardiac tamponade [Unknown]
  - Hypotension [Unknown]

NARRATIVE: CASE EVENT DATE: 20140713
